FAERS Safety Report 7328575-3 (Version None)
Quarter: 2011Q1

REPORT INFORMATION
  Report Type: 
  Country: None (occurrence: None)
  Receive Date: 20110303
  Receipt Date: 20110218
  Transmission Date: 20110831
  Serious: Yes (Hospitalization)
  Sender: FDA-Public Use
  Company Number: US-VIROPHARMA INCORPORATED-20110124CINRY1782

PATIENT
  Sex: Female

DRUGS (1)
  1. CINRYZE [Suspect]
     Indication: HEREDITARY ANGIOEDEMA
     Dates: start: 20110110

REACTIONS (4)
  - VOMITING [None]
  - PNEUMONIA [None]
  - NAUSEA [None]
  - SYSTEMIC LUPUS ERYTHEMATOSUS [None]
